FAERS Safety Report 7093850-7 (Version None)
Quarter: 2010Q4

REPORT INFORMATION
  Report Type: 
  Country: None (occurrence: None)
  Receive Date: 20101110
  Receipt Date: 20101104
  Transmission Date: 20110411
  Serious: Yes (Hospitalization)
  Sender: FDA-Public Use
  Company Number: A0890897A

PATIENT
  Sex: Male

DRUGS (5)
  1. ARIXTRA [Suspect]
     Dosage: 10MG PER DAY
     Route: 058
  2. ASPIRIN [Concomitant]
  3. BETA BLOCKER [Concomitant]
  4. PROTON PUMP INHIBITOR [Concomitant]
  5. UNKNOWN MEDICATION [Concomitant]

REACTIONS (2)
  - HAEMORRHAGE [None]
  - URINARY BLADDER HAEMORRHAGE [None]
